FAERS Safety Report 9866439 (Version 1)
Quarter: 2014Q1

REPORT INFORMATION
  Report Type: Spontaneous
  Country: US (occurrence: US)
  Receive Date: 20140204
  Receipt Date: 20140204
  Transmission Date: 20141002
  Serious: No
  Sender: FDA-Public Use
  Company Number: US-009507513-1402USA000194

PATIENT
  Age: 64 Year
  Sex: Male

DRUGS (4)
  1. JANUVIA [Suspect]
     Indication: TYPE 2 DIABETES MELLITUS
     Dosage: 100 MG, QD
     Route: 048
     Dates: start: 201311
  2. ALLOPURINOL [Concomitant]
  3. METFORMIN [Concomitant]
  4. GLIPIZIDE [Concomitant]

REACTIONS (1)
  - Drug ineffective [Not Recovered/Not Resolved]
